FAERS Safety Report 9133654 (Version 1)
Quarter: 2013Q1

REPORT INFORMATION
  Report Type: Spontaneous
  Country: GB (occurrence: GB)
  Receive Date: 20130301
  Receipt Date: 20130301
  Transmission Date: 20140127
  Serious: Yes (Life-Threatening, Hospitalization, Other)
  Sender: FDA-Public Use
  Company Number: PHFR2005GB02094

PATIENT
  Age: 24 Year
  Sex: Male

DRUGS (2)
  1. CLOZARIL [Suspect]
     Indication: SCHIZOPHRENIA
     Dosage: 500 MG, QD
     Route: 048
  2. CLOZARIL [Suspect]
     Dosage: 475 MG, QD
     Route: 048
     Dates: start: 20050316

REACTIONS (4)
  - Oral mucosal blistering [Unknown]
  - Vomiting [Unknown]
  - Neutrophil count increased [Unknown]
  - White blood cell count increased [Unknown]
